FAERS Safety Report 9191699 (Version 2)
Quarter: 2013Q2

REPORT INFORMATION
  Report Type: Spontaneous
  Country: US (occurrence: US)
  Receive Date: 20130326
  Receipt Date: 20130513
  Transmission Date: 20140414
  Serious: No
  Sender: FDA-Public Use
  Company Number: US-009507513-1303USA012848

PATIENT
  Sex: Male
  Weight: 79.37 kg

DRUGS (1)
  1. CLARITIN REDITABS [Suspect]
     Indication: SEASONAL ALLERGY
     Dosage: 30 MG, UNKNOWN
     Route: 048
     Dates: start: 201303, end: 201303

REACTIONS (1)
  - Somnolence [Unknown]
